FAERS Safety Report 7328853-8 (Version None)
Quarter: 2011Q1

REPORT INFORMATION
  Report Type: 
  Country: None (occurrence: None)
  Receive Date: 20110303
  Receipt Date: 20110223
  Transmission Date: 20110831
  Serious: Yes (Other)
  Sender: FDA-Public Use
  Company Number: NL-ROCHE-762140

PATIENT
  Age: 63 Year
  Sex: Male

DRUGS (5)
  1. NEORECORMON [Concomitant]
  2. MIRCERA [Suspect]
     Route: 058
     Dates: start: 20090401
  3. MIRCERA [Suspect]
     Route: 058
     Dates: end: 20100101
  4. NEORECORMON [Concomitant]
  5. NEORECORMON [Concomitant]
     Dates: start: 20100101

REACTIONS (2)
  - RENAL HAEMORRHAGE [None]
  - HAEMOGLOBIN DECREASED [None]
